FAERS Safety Report 6786122-9 (Version None)
Quarter: 2010Q2

REPORT INFORMATION
  Report Type: 
  Country: None (occurrence: None)
  Receive Date: 20100623
  Receipt Date: 20100614
  Transmission Date: 20101027
  Serious: Yes (Other)
  Sender: FDA-Public Use
  Company Number: CA-ASTRAZENECA-2010SE28271

PATIENT
  Age: 70 Year
  Sex: Female

DRUGS (10)
  1. CRESTOR [Suspect]
     Route: 048
     Dates: start: 20070101
  2. CRESTOR [Suspect]
     Route: 048
  3. CRESTOR [Suspect]
     Route: 048
     Dates: start: 20100101
  4. RAMIPRIL [Concomitant]
     Route: 048
  5. METOPROLOL TARTRATE [Concomitant]
  6. ASPIRIN [Concomitant]
  7. VITAMIN D [Concomitant]
  8. VITAMIN E [Concomitant]
  9. COD LIVER OIL [Concomitant]
  10. NOVOLIN 70/30 [Concomitant]

REACTIONS (6)
  - DIABETES MELLITUS [None]
  - GAIT DISTURBANCE [None]
  - GANGRENE [None]
  - MYALGIA [None]
  - PRURITUS [None]
  - TENDERNESS [None]
